FAERS Safety Report 23750651 (Version 1)
Quarter: 2024Q2

REPORT INFORMATION
  Report Type: Spontaneous
  Country: US (occurrence: US)
  Receive Date: 20240417
  Receipt Date: 20240417
  Transmission Date: 20240716
  Serious: Yes (Other)
  Sender: FDA-Public Use
  Company Number: US-AVADEL CNS PHARMACEUTICALS, LLC-2024AVA00444

PATIENT
  Age: 27 Year
  Sex: Female

DRUGS (8)
  1. LUMRYZ [Suspect]
     Active Substance: SODIUM OXYBATE
     Indication: Narcolepsy
     Dosage: 6 G
     Route: 048
     Dates: start: 202402, end: 202403
  2. LUMRYZ [Suspect]
     Active Substance: SODIUM OXYBATE
     Indication: Cataplexy
  3. LUMRYZ [Suspect]
     Active Substance: SODIUM OXYBATE
     Indication: Narcolepsy
     Dosage: 7.5 G (MAINTENANCE DOSE), ONCE NIGHTLY
     Route: 048
     Dates: start: 202403, end: 20240324
  4. LUMRYZ [Suspect]
     Active Substance: SODIUM OXYBATE
     Indication: Cataplexy
  5. SUNOSI [Suspect]
     Active Substance: SOLRIAMFETOL
     Dosage: UNK
     Dates: start: 202311
  6. SUNOSI [Suspect]
     Active Substance: SOLRIAMFETOL
     Dosage: HALF HER DOSE
     Dates: start: 2024
  7. MINERALS\VITAMINS [Concomitant]
     Active Substance: MINERALS\VITAMINS
  8. NATURES BOUNTY HAIR, SKIN, NAIL GUMMY [Concomitant]

REACTIONS (13)
  - Loss of consciousness [Recovered/Resolved]
  - Chest pain [Recovered/Resolved]
  - Mental disorder [Recovered/Resolved]
  - Autoscopy [Recovered/Resolved]
  - Feeling abnormal [Recovered/Resolved]
  - Palpitations [Recovered/Resolved]
  - Slow response to stimuli [Recovered/Resolved]
  - Migraine [Recovered/Resolved]
  - Psychotic disorder [Recovered/Resolved]
  - Hypertension [Recovered/Resolved]
  - Paranoia [Recovered/Resolved]
  - Pain in extremity [Recovered/Resolved]
  - Enuresis [Recovered/Resolved]

NARRATIVE: CASE EVENT DATE: 20240301
